FAERS Safety Report 20947357 (Version 1)
Quarter: 2022Q2

REPORT INFORMATION
  Report Type: Spontaneous
  Country: IT (occurrence: IT)
  Receive Date: 20220610
  Receipt Date: 20220610
  Transmission Date: 20220721
  Serious: Yes (Other)
  Sender: FDA-Public Use
  Company Number: IT-009507513-2206ITA002779

PATIENT
  Age: 70 Year
  Sex: Female

DRUGS (26)
  1. RALTEGRAVIR POTASSIUM [Suspect]
     Active Substance: RALTEGRAVIR POTASSIUM
     Indication: Antiretroviral therapy
     Dosage: UNK
     Route: 048
     Dates: start: 20110117, end: 20110926
  2. RALTEGRAVIR POTASSIUM [Suspect]
     Active Substance: RALTEGRAVIR POTASSIUM
     Dosage: UNK
     Route: 048
     Dates: start: 20110926, end: 20140526
  3. RALTEGRAVIR POTASSIUM [Suspect]
     Active Substance: RALTEGRAVIR POTASSIUM
     Dosage: UNK
     Route: 048
     Dates: start: 20140526, end: 20160215
  4. DARUNAVIR [Suspect]
     Active Substance: DARUNAVIR
     Dosage: 600/100MG, BID
     Dates: start: 20110117, end: 20110926
  5. DARUNAVIR [Suspect]
     Active Substance: DARUNAVIR
     Dosage: 800/100 MG, OD
     Dates: start: 20110926, end: 20140526
  6. DARUNAVIR [Suspect]
     Active Substance: DARUNAVIR
     Dosage: UNK
     Dates: start: 20140526, end: 20160215
  7. DARUNAVIR [Suspect]
     Active Substance: DARUNAVIR
     Dosage: UNK
     Dates: start: 20160215, end: 20160926
  8. DARUNAVIR [Suspect]
     Active Substance: DARUNAVIR
     Dosage: UNK
     Dates: start: 20180319, end: 20200526
  9. DARUNAVIR [Suspect]
     Active Substance: DARUNAVIR
     Dosage: UNK
     Dates: start: 20170928, end: 20180319
  10. DARUNAVIR\RITONAVIR [Suspect]
     Active Substance: DARUNAVIR\RITONAVIR
     Dosage: 600/100 BID
     Dates: start: 20110117, end: 20110926
  11. TENOFOVIR DISOPROXIL FUMARATE [Suspect]
     Active Substance: TENOFOVIR DISOPROXIL FUMARATE
     Dosage: UNK
     Dates: start: 20110117, end: 20110926
  12. TENOFOVIR DISOPROXIL FUMARATE [Suspect]
     Active Substance: TENOFOVIR DISOPROXIL FUMARATE
     Dosage: UNK
     Dates: start: 20110926, end: 20140526
  13. ETRAVIRINE [Suspect]
     Active Substance: ETRAVIRINE
     Dosage: UNK
     Dates: start: 20160926, end: 20170928
  14. RITONAVIR [Suspect]
     Active Substance: RITONAVIR
     Dosage: UNK
     Dates: start: 20140526, end: 20160215
  15. RITONAVIR [Suspect]
     Active Substance: RITONAVIR
     Dosage: UNK
     Dates: start: 20160215, end: 20160926
  16. DOLUTEGRAVIR SODIUM [Suspect]
     Active Substance: DOLUTEGRAVIR SODIUM
     Dosage: UNK
     Dates: start: 20160215, end: 20160926
  17. DOLUTEGRAVIR SODIUM [Suspect]
     Active Substance: DOLUTEGRAVIR SODIUM
     Dosage: UNK
     Dates: start: 20160926, end: 20170928
  18. DOLUTEGRAVIR SODIUM [Suspect]
     Active Substance: DOLUTEGRAVIR SODIUM
     Dosage: UNK
     Dates: start: 20180319, end: 20200526
  19. EMTRICITABINE\TENOFOVIR [Suspect]
     Active Substance: EMTRICITABINE\TENOFOVIR
     Dosage: UNK
     Dates: start: 20160926, end: 20170928
  20. EMTRICITABINE\TENOFOVIR [Suspect]
     Active Substance: EMTRICITABINE\TENOFOVIR
     Dosage: UNK
     Dates: start: 20180319, end: 20200526
  21. COBICISTAT\DARUNAVIR ETHANOLATE [Suspect]
     Active Substance: COBICISTAT\DARUNAVIR ETHANOLATE
     Dosage: UNK
     Dates: start: 20170928, end: 20180319
  22. COBICISTAT\DARUNAVIR ETHANOLATE [Suspect]
     Active Substance: COBICISTAT\DARUNAVIR ETHANOLATE
     Dosage: UNK
     Dates: start: 20180319, end: 20200526
  23. PRAVASTATIN [Concomitant]
     Active Substance: PRAVASTATIN
     Dosage: 20MG
  24. PANTOPRAZOLE [Concomitant]
     Active Substance: PANTOPRAZOLE
     Dosage: 20 MILLIGRAM
  25. HYDROCHLOROTHIAZIDE\LOSARTAN POTASSIUM [Concomitant]
     Active Substance: HYDROCHLOROTHIAZIDE\LOSARTAN POTASSIUM
  26. LEVOTHYROXINE [Concomitant]
     Active Substance: LEVOTHYROXINE

REACTIONS (4)
  - Myopathy toxic [Unknown]
  - Osteopenia [Unknown]
  - Toxicity to various agents [Unknown]
  - Virologic failure [Unknown]

NARRATIVE: CASE EVENT DATE: 20160101
